FAERS Safety Report 15112996 (Version 1)
Quarter: 2018Q3

REPORT INFORMATION
  Report Type: Spontaneous
  Country: DE (occurrence: DE)
  Receive Date: 20180706
  Receipt Date: 20180706
  Transmission Date: 20181010
  Serious: Yes (Other)
  Sender: FDA-Public Use
  Company Number: DE-SUN PHARMACEUTICAL INDUSTRIES LTD-2018RR-177527

PATIENT
  Age: 32 Year
  Sex: Female
  Weight: 73 kg

DRUGS (1)
  1. CIPROFLOXACIN. [Suspect]
     Active Substance: CIPROFLOXACIN
     Indication: SINUSITIS
     Dosage: 2 X 500 MG
     Route: 048
     Dates: start: 20180201

REACTIONS (22)
  - Tendon pain [Unknown]
  - Palpitations [Recovered/Resolved]
  - Myalgia [Unknown]
  - Contusion [Unknown]
  - Tendon pain [Unknown]
  - Burning sensation [Recovered/Resolved]
  - Back pain [Unknown]
  - Presyncope [Recovered/Resolved]
  - Crying [Unknown]
  - Panic attack [Recovered/Resolved]
  - Arthralgia [Recovered/Resolved]
  - Pulpitis dental [Recovered/Resolved]
  - Paraesthesia [Recovered/Resolved]
  - Depression suicidal [Unknown]
  - Extrasystoles [Unknown]
  - Dyspnoea [Recovered/Resolved]
  - Pain [Unknown]
  - Decreased appetite [Unknown]
  - Diarrhoea [Recovered/Resolved]
  - Hypoaesthesia [Unknown]
  - Depression [Unknown]
  - Myosclerosis [Unknown]

NARRATIVE: CASE EVENT DATE: 20180204
